FAERS Safety Report 10602914 (Version 2)
Quarter: 2014Q4

REPORT INFORMATION
  Report Type: Spontaneous
  Country: DE (occurrence: DE)
  Receive Date: 20141124
  Receipt Date: 20141124
  Transmission Date: 20150529
  Serious: Yes (Other)
  Sender: FDA-Public Use
  Company Number: PHHY2014DE109334

PATIENT
  Sex: Male

DRUGS (2)
  1. TRIMIPRAMINA [Concomitant]
     Indication: DEPRESSION
     Dosage: 50 MG, DAILY
     Route: 048
     Dates: start: 20140122
  2. GILENYA [Suspect]
     Active Substance: FINGOLIMOD HYDROCHLORIDE
     Indication: RELAPSING-REMITTING MULTIPLE SCLEROSIS
     Dosage: 0.5 MG, QD
     Route: 048
     Dates: start: 20111122, end: 20140828

REACTIONS (4)
  - Loss of consciousness [Unknown]
  - Syncope [Recovered/Resolved]
  - Ataxia [Unknown]
  - Dyspnoea [Recovered/Resolved]
